FAERS Safety Report 14492810 (Version 1)
Quarter: 2018Q1

REPORT INFORMATION
  Report Type: Spontaneous
  Country: US (occurrence: US)
  Receive Date: 20180206
  Receipt Date: 20180206
  Transmission Date: 20180509
  Serious: No
  Sender: FDA-Public Use
  Company Number: US-JNJFOC-20171210565

PATIENT
  Sex: Female

DRUGS (3)
  1. ZYRTEC [Suspect]
     Active Substance: CETIRIZINE HYDROCHLORIDE
     Indication: HYPERSENSITIVITY
     Dosage: STARTED ON EITHER END OF AUG-2017 OR BEGINNING OF SEP-2017; 1/2 OF A TABLET EVERY SEVEN DAYS
     Route: 065
     Dates: start: 2017
  2. ZYRTEC [Suspect]
     Active Substance: CETIRIZINE HYDROCHLORIDE
     Indication: PRURITUS
     Dosage: STARTED ON EITHER END OF AUG-2017 OR BEGINNING OF SEP-2017; 1/2 OF A TABLET EVERY SEVEN DAYS
     Route: 065
     Dates: start: 2017
  3. ZYRTEC [Suspect]
     Active Substance: CETIRIZINE HYDROCHLORIDE
     Indication: STRESS
     Dosage: STARTED ON EITHER END OF AUG-2017 OR BEGINNING OF SEP-2017; 1/2 OF A TABLET EVERY SEVEN DAYS
     Route: 065
     Dates: start: 2017

REACTIONS (3)
  - Diarrhoea [Not Recovered/Not Resolved]
  - Wrong technique in product usage process [Not Recovered/Not Resolved]
  - Product use in unapproved indication [Not Recovered/Not Resolved]

NARRATIVE: CASE EVENT DATE: 2017
